FAERS Safety Report 11031068 (Version 1)
Quarter: 2015Q2

REPORT INFORMATION
  Report Type: Spontaneous
  Country: US (occurrence: US)
  Receive Date: 20150415
  Receipt Date: 20150415
  Transmission Date: 20150821
  Serious: No
  Sender: FDA-Public Use
  Company Number: US-ASTRAZENECA-2015SE15975

PATIENT
  Sex: Female

DRUGS (1)
  1. PRILOSEC OTC [Suspect]
     Active Substance: OMEPRAZOLE MAGNESIUM
     Route: 048

REACTIONS (4)
  - Vitamin B12 increased [Not Recovered/Not Resolved]
  - Incorrect drug administration duration [Unknown]
  - Blood folate increased [Not Recovered/Not Resolved]
  - Drug interaction [Not Recovered/Not Resolved]
